FAERS Safety Report 9158272 (Version 1)
Quarter: 2013Q1

REPORT INFORMATION
  Report Type: Spontaneous
  Country: GB (occurrence: None)
  Receive Date: 20130211
  Receipt Date: 20130211
  Transmission Date: 20140127
  Serious: No
  Sender: FDA-Public Use
  Company Number: 2013/022

PATIENT
  Sex: Female

DRUGS (1)
  1. AMLODIPINE (NO PREF. NAME) 5 MG [Suspect]
     Indication: HYPERTENSION
     Route: 048
     Dates: start: 20130108, end: 20130112

REACTIONS (5)
  - Asthenia [None]
  - Disorientation [None]
  - Chills [None]
  - Pollakiuria [None]
  - Feeling abnormal [None]
